FAERS Safety Report 19580128 (Version 4)
Quarter: 2021Q3

REPORT INFORMATION
  Report Type: Report from Study
  Country: AU (occurrence: AU)
  Receive Date: 20210719
  Receipt Date: 20210906
  Transmission Date: 20211014
  Serious: Yes (Hospitalization, Other)
  Sender: FDA-Public Use
  Company Number: NVSC2021AU154505

PATIENT
  Age: 8 Month
  Sex: Female
  Weight: 9.2 kg

DRUGS (8)
  1. OMEPRAZOLE. [Concomitant]
     Active Substance: OMEPRAZOLE
     Indication: PRODUCT USED FOR UNKNOWN INDICATION
     Dosage: 10 MG, BID
     Route: 065
     Dates: start: 20210628
  2. AMLODIPINE [Concomitant]
     Active Substance: AMLODIPINE BESYLATE
     Indication: HYPERTENSION
     Dosage: 2 MG, BID
     Route: 065
     Dates: start: 20210706
  3. FRUSEMIDE [Concomitant]
     Active Substance: FUROSEMIDE
     Indication: FLUID OVERLOAD
     Dosage: 1.5 ML, BID
     Route: 065
     Dates: start: 20210709, end: 20210713
  4. NAHCO3 [Concomitant]
     Active Substance: SODIUM BICARBONATE
     Indication: ACIDOSIS
     Dosage: 9 MMOL, BID
     Route: 065
     Dates: start: 20210706, end: 20210713
  5. ZOLGENSMA [Suspect]
     Active Substance: ONASEMNOGENE ABEPARVOVEC-XIOI
     Indication: SPINAL MUSCULAR ATROPHY
     Dosage: 49.5 ML, ONCE/SINGLE
     Route: 042
     Dates: start: 20210629, end: 20210629
  6. LABETALOL [Concomitant]
     Active Substance: LABETALOL\LABETALOL HYDROCHLORIDE
     Indication: HYPERTENSION
     Dosage: 15 MG TDS
     Route: 065
     Dates: start: 20210709
  7. SPIRONOLACTONE. [Concomitant]
     Active Substance: SPIRONOLACTONE
     Indication: FLUID OVERLOAD
     Dosage: 10 MG, DAILY
     Route: 065
     Dates: start: 20210709, end: 20210713
  8. CLONIDINE. [Concomitant]
     Active Substance: CLONIDINE
     Indication: HYPERTENSION
     Dosage: UNK
     Route: 065

REACTIONS (11)
  - Proteinuria [Unknown]
  - Hyponatraemia [Unknown]
  - Acute kidney injury [Unknown]
  - Transaminases increased [Not Recovered/Not Resolved]
  - Vomiting [Recovered/Resolved]
  - Thrombotic microangiopathy [Recovering/Resolving]
  - Haemolytic anaemia [Unknown]
  - Frequent bowel movements [Unknown]
  - Pyrexia [Recovered/Resolved]
  - Thrombocytopenia [Unknown]
  - Contusion [Unknown]

NARRATIVE: CASE EVENT DATE: 20210701
